FAERS Safety Report 5988449-7 (Version None)
Quarter: 2008Q4

REPORT INFORMATION
  Report Type: 
  Country: None (occurrence: None)
  Receive Date: 20081210
  Receipt Date: 20081204
  Transmission Date: 20090506
  Serious: Yes (Hospitalization, Other)
  Sender: FDA-Public Use
  Company Number: US-BRISTOL-MYERS SQUIBB COMPANY-14376206

PATIENT
  Age: 72 Year
  Sex: Female
  Weight: 68 kg

DRUGS (17)
  1. COUMADIN [Suspect]
     Indication: CEREBROVASCULAR ACCIDENT
     Dosage: 2 TABS IN THE MORNING,1 TABS IN THE AFTERNOON ON FIRST DAY, 5MG/D ON 18JUL08.
     Route: 048
     Dates: start: 20080401
  2. COUMADIN [Suspect]
     Indication: FACTOR V LEIDEN MUTATION
     Dosage: 2 TABS IN THE MORNING,1 TABS IN THE AFTERNOON ON FIRST DAY, 5MG/D ON 18JUL08.
     Route: 048
     Dates: start: 20080401
  3. PLAVIX [Suspect]
     Indication: STENT PLACEMENT
     Route: 048
     Dates: start: 20060417, end: 20080101
  4. PLAVIX [Suspect]
     Indication: FACTOR V LEIDEN MUTATION
     Route: 048
     Dates: start: 20060417, end: 20080101
  5. PLAVIX [Suspect]
     Indication: CEREBROVASCULAR ACCIDENT
     Route: 048
     Dates: start: 20060417, end: 20080101
  6. ASPIRIN [Suspect]
     Indication: STENT PLACEMENT
     Dosage: TAB
     Route: 048
     Dates: start: 20060417, end: 20080101
  7. COZAAR [Concomitant]
     Dosage: TAB
     Route: 048
     Dates: start: 20070901, end: 20080101
  8. NORVASC [Concomitant]
     Route: 048
     Dates: start: 20070901, end: 20080101
  9. CRESTOR [Concomitant]
     Route: 048
     Dates: start: 20070901, end: 20080101
  10. TOPROL-XL [Concomitant]
     Dosage: TAB
     Route: 048
     Dates: start: 20070901, end: 20080101
  11. HYDROCHLOROTHIAZIDE [Concomitant]
     Dosage: TAB
     Route: 048
     Dates: start: 20070901, end: 20080702
  12. CALTRATE + D [Concomitant]
  13. LOVAZA [Concomitant]
  14. CENTRUM SILVER [Concomitant]
     Dates: start: 20070901, end: 20080101
  15. FISH OIL [Concomitant]
     Route: 048
     Dates: start: 20070901, end: 20080101
  16. DIHYDROTACHYSTEROL [Concomitant]
     Dates: start: 20070901, end: 20080101
  17. CALCIUM CARBONATE [Concomitant]
     Dates: start: 20070901, end: 20080101

REACTIONS (3)
  - DUODENAL ULCER [None]
  - GASTROINTESTINAL HAEMORRHAGE [None]
  - INTERNATIONAL NORMALISED RATIO DECREASED [None]
